FAERS Safety Report 4499834-7 (Version None)
Quarter: 2004Q4

REPORT INFORMATION
  Report Type: 
  Country: None (occurrence: None)
  Receive Date: 20041112
  Receipt Date: 20040921
  Transmission Date: 20050328
  Serious: Yes (Other)
  Sender: FDA-Public Use
  Company Number: US-AMGEN-US092234

PATIENT
  Sex: Male

DRUGS (7)
  1. ENBREL [Suspect]
     Indication: RHEUMATOID ARTHRITIS
     Route: 058
     Dates: start: 20040526, end: 20040910
  2. METHOTREXATE [Concomitant]
     Dates: start: 19981109, end: 20040917
  3. PREDNISONE [Concomitant]
     Dates: start: 19981105
  4. PREVACID [Concomitant]
     Dates: start: 20020408
  5. VICODIN [Concomitant]
     Dates: start: 20040917
  6. MOTRIN [Concomitant]
     Dates: start: 20020408
  7. ARAVA [Concomitant]
     Dates: start: 20040630

REACTIONS (4)
  - JOINT EFFUSION [None]
  - JOINT TUBERCULOSIS [None]
  - SKIN TEST POSITIVE [None]
  - THERAPY NON-RESPONDER [None]
